FAERS Safety Report 7301686-4 (Version None)
Quarter: 2011Q1

REPORT INFORMATION
  Report Type: 
  Country: None (occurrence: None)
  Receive Date: 20110218
  Receipt Date: 20110208
  Transmission Date: 20110831
  Serious: Yes (Death, Hospitalization)
  Sender: FDA-Public Use
  Company Number: JP-BAYER-200911771BYL

PATIENT
  Age: 81 Year
  Sex: Male
  Weight: 71 kg

DRUGS (9)
  1. NEXAVAR [Suspect]
     Indication: RENAL CELL CARCINOMA STAGE IV
     Dosage: 200 MG, QD
     Route: 048
     Dates: start: 20090501, end: 20090518
  2. PRORENAL [Concomitant]
     Dosage: 10 ?G (DAILY DOSE), , ORAL
     Route: 048
     Dates: start: 20090519
  3. OXYCONTIN [Concomitant]
     Dosage: 15 MG (DAILY DOSE), , ORAL
     Route: 048
     Dates: start: 20090519
  4. OMEPRAL [Concomitant]
     Indication: GASTRITIS PROPHYLAXIS
     Dosage: 20 MG (DAILY DOSE), , INTRAVENOUS
     Route: 042
     Dates: start: 20090524
  5. UNCODEABLE ^UNCLASSIFIABLE^ [Concomitant]
     Dosage: 50 MG (DAILY DOSE), , INTRAVENOUS
     Route: 042
     Dates: start: 20090524
  6. NOVAMIN [Concomitant]
     Dosage: 10 MG (DAILY DOSE), , ORAL
     Route: 048
     Dates: start: 20090519
  7. CALONAL [Concomitant]
     Dosage: 1500 MG (DAILY DOSE), , ORAL
     Route: 048
     Dates: start: 20090519
  8. OXYCONTIN [Concomitant]
     Dosage: 10 MG, QD
     Route: 048
     Dates: start: 20090508, end: 20090518
  9. ARGAMATE [Concomitant]
     Dosage: 75 G (DAILY DOSE), , ORAL
     Route: 048
     Dates: start: 20090523

REACTIONS (3)
  - GASTRIC ULCER [None]
  - RENAL CELL CARCINOMA [None]
  - PLATELET COUNT DECREASED [None]
